FAERS Safety Report 22609118 (Version 1)
Quarter: 2023Q2

REPORT INFORMATION
  Report Type: Spontaneous
  Country: GB (occurrence: GB)
  Receive Date: 20230616
  Receipt Date: 20230616
  Transmission Date: 20230721
  Serious: Yes (Hospitalization)
  Sender: FDA-Public Use
  Company Number: None

PATIENT
  Sex: Male

DRUGS (8)
  1. DONEPEZIL HYDROCHLORIDE [Suspect]
     Active Substance: DONEPEZIL HYDROCHLORIDE
     Indication: Product used for unknown indication
     Dosage: 5 MG TABLETS
  2. BISACODYL [Concomitant]
     Active Substance: BISACODYL
     Dosage: 5 MG GASTRO-RESISTANT TABLETS TWO TO BE TAKEN AT NIGHT 56 TABLET
  3. CAFFEINE [Concomitant]
     Active Substance: CAFFEINE
  4. FUROSEMIDE [Concomitant]
     Active Substance: FUROSEMIDE
     Dosage: 40 MG TABLETS ONE TO BE TAKEN EACH MORNING 28 TABLET
  5. GLYCOPYRRONIUM [Concomitant]
     Active Substance: GLYCOPYRRONIUM
     Dosage: 400 MICROGRAMS/ML ORAL SOLUTION SUGAR FREE 1.25 TO 2.5ML TO BE GIVEN THREE TIMES EACH DAY FOR HYPER
  6. LEVOTHYROXINE [Concomitant]
     Active Substance: LEVOTHYROXINE
     Dosage: 75 MICROGRAM TABLETS ONE TO BE TAKEN EACH MORNING
  7. MEMANTINE [Concomitant]
     Active Substance: MEMANTINE
  8. PERINDOPRIL [Concomitant]
     Active Substance: PERINDOPRIL
     Dosage: 2 MG TABLETS ONE TO BE TAKEN EACH MORNING STOPPED ON 04-OCT-2022

REACTIONS (1)
  - Musculoskeletal stiffness [Recovered/Resolved]
